FAERS Safety Report 14304933 (Version 1)
Quarter: 2017Q4

REPORT INFORMATION
  Report Type: Report from Study
  Country: TW (occurrence: TW)
  Receive Date: 20171219
  Receipt Date: 20171219
  Transmission Date: 20180321
  Serious: Yes (Hospitalization)
  Sender: FDA-Public Use
  Company Number: TW-OTSUKA-03100-JPN-07-0317

PATIENT
  Age: 28 Year
  Sex: Male

DRUGS (18)
  1. ARIPIPRAZOLE. [Suspect]
     Active Substance: ARIPIPRAZOLE
     Dosage: 30 MG, QD
     Route: 048
     Dates: start: 20070725
  2. ZOLPIDEM [Concomitant]
     Active Substance: ZOLPIDEM\ZOLPIDEM TARTRATE
     Route: 048
     Dates: start: 20070713
  3. PROPANOLOL HCI [Concomitant]
     Dosage: 10 MG, TID
     Route: 048
     Dates: start: 20070714, end: 20070715
  4. BIPERIDEN [Concomitant]
     Active Substance: BIPERIDEN
     Dosage: 2 MG, BID
     Route: 048
     Dates: start: 2007, end: 20070628
  5. CLONAZEPAM. [Concomitant]
     Active Substance: CLONAZEPAM
     Dosage: 0.75 MG, QID
     Route: 048
     Dates: start: 20070723
  6. ESTAZOLAM. [Concomitant]
     Active Substance: ESTAZOLAM
     Dosage: 2 MG, SINGLE
     Route: 048
     Dates: start: 20070629, end: 20070712
  7. CLONAZEPAM. [Concomitant]
     Active Substance: CLONAZEPAM
     Indication: EPILEPSY
     Dosage: 22JUN2007-5JUL2007 0.5MG ORAL; 6JUL2007-12JUL2007 3MG ORAL.13JUL-22JUL 4MG.23JUL-ONGOING 3MG
     Route: 048
     Dates: start: 20070706, end: 20070712
  8. ARIPIPRAZOLE. [Suspect]
     Active Substance: ARIPIPRAZOLE
     Dosage: 15 MG, QD
     Route: 048
     Dates: start: 20070629, end: 20070705
  9. ZOLPIDEM [Concomitant]
     Active Substance: ZOLPIDEM\ZOLPIDEM TARTRATE
     Route: 048
     Dates: start: 2007, end: 20070628
  10. ZOLPIDEM [Concomitant]
     Active Substance: ZOLPIDEM\ZOLPIDEM TARTRATE
     Indication: INSOMNIA
     Dosage: ZOLPIDEM 2007-28JUN2007; 13JULY2007-CONTINUING
     Route: 048
     Dates: start: 20070713
  11. PROPRANOLOL [Concomitant]
     Active Substance: PROPRANOLOL HYDROCHLORIDE
     Indication: ANXIETY
     Dosage: 16JUL-ONGOING 40MG.
     Route: 048
     Dates: start: 20070714, end: 20070715
  12. ESTAZOLAM. [Concomitant]
     Active Substance: ESTAZOLAM
     Dosage: 2 MG, PRN
     Route: 048
     Dates: start: 20070713, end: 20070812
  13. PROPANOLOL HCI [Concomitant]
     Dosage: 10 MG, QID
     Route: 048
     Dates: start: 20070716
  14. CLONAZEPAM. [Concomitant]
     Active Substance: CLONAZEPAM
     Route: 048
     Dates: start: 20070622, end: 20070705
  15. ARIPIPRAZOLE. [Suspect]
     Active Substance: ARIPIPRAZOLE
     Dosage: 10 MG, QD
     Route: 048
     Dates: start: 20070622, end: 20070628
  16. CLONAZEPAM. [Concomitant]
     Active Substance: CLONAZEPAM
     Dosage: 1 MG, TID
     Route: 048
     Dates: start: 20070706, end: 20070712
  17. ARIPIPRAZOLE. [Suspect]
     Active Substance: ARIPIPRAZOLE
     Dosage: 20 MG, QD
     Route: 048
     Dates: start: 20070706, end: 20070724
  18. CLONAZEPAM. [Concomitant]
     Active Substance: CLONAZEPAM
     Dosage: 1 MG, QID
     Route: 048
     Dates: start: 20070713, end: 20070722

REACTIONS (3)
  - Bradykinesia [Not Recovered/Not Resolved]
  - Akathisia [Not Recovered/Not Resolved]
  - Discomfort [Not Recovered/Not Resolved]

NARRATIVE: CASE EVENT DATE: 20070706
